FAERS Safety Report 9378988 (Version 1)
Quarter: 2013Q3

REPORT INFORMATION
  Report Type: Spontaneous
  Country: PH (occurrence: PH)
  Receive Date: 20130702
  Receipt Date: 20130702
  Transmission Date: 20140515
  Serious: Yes (Other)
  Sender: FDA-Public Use
  Company Number: PH-009507513-1307PHL000229

PATIENT
  Age: 66 Year
  Sex: Female

DRUGS (1)
  1. JANUVIA [Suspect]
     Dosage: 100 MG TABLET, ONE TABLET, ONCE A DAY
     Route: 048
     Dates: start: 2012

REACTIONS (2)
  - Breast cancer stage II [Unknown]
  - Blood glucose increased [Unknown]
